FAERS Safety Report 4605039-9 (Version None)
Quarter: 2005Q1

REPORT INFORMATION
  Report Type: 
  Country: None (occurrence: None)
  Receive Date: 20050311
  Receipt Date: 20050308
  Transmission Date: 20050727
  Serious: Yes (Other)
  Sender: FDA-Public Use
  Company Number: JP-JNJFOC-20040908704

PATIENT
  Sex: Male

DRUGS (4)
  1. LEUSTATIN [Suspect]
     Indication: DIFFUSE LARGE B-CELL LYMPHOMA
  2. ARA-C [Suspect]
     Indication: B-CELL LYMPHOMA
  3. BUSULFAN [Suspect]
     Indication: B-CELL LYMPHOMA
  4. ANTITHYMOCYTE GLOBULIN [Suspect]
     Indication: B-CELL LYMPHOMA

REACTIONS (1)
  - NOCARDIOSIS [None]
